FAERS Safety Report 9398284 (Version 2)
Quarter: 2014Q1

REPORT INFORMATION
  Report Type: Spontaneous
  Country: CZ (occurrence: CZ)
  Receive Date: 20130712
  Receipt Date: 20140214
  Transmission Date: 20141002
  Serious: Yes (Other)
  Sender: FDA-Public Use
  Company Number: CZ-GLAXOSMITHKLINE-B0828471A

PATIENT
  Age: 69 Year
  Sex: Male

DRUGS (12)
  1. VOTRIENT [Suspect]
     Indication: RENAL CANCER
     Dosage: 800MG PER DAY
     Route: 048
     Dates: start: 20120414, end: 20130308
  2. VOTRIENT [Suspect]
     Indication: RENAL CANCER
     Dosage: 400MG PER DAY
     Route: 048
     Dates: start: 20110330, end: 20130711
  3. VOTRIENT [Suspect]
     Indication: RENAL CANCER
     Dosage: 600MG PER DAY
     Route: 048
     Dates: start: 20130712, end: 20130808
  4. EGILOK [Concomitant]
  5. SIMVASTATIN [Concomitant]
  6. PERINDOPRIL ERBUMINE [Concomitant]
  7. GLIMEPIRIDE [Concomitant]
  8. ANOPYRIN [Concomitant]
  9. GLURENORM [Concomitant]
  10. AKTIFERRIN [Concomitant]
     Route: 065
  11. EUTHYROX [Concomitant]
     Route: 065
  12. CALCIUM [Concomitant]
     Route: 065

REACTIONS (6)
  - Nephrosclerosis [Unknown]
  - Hepatic enzyme increased [Recovered/Resolved]
  - Nephrotic syndrome [Unknown]
  - Proteinuria [Unknown]
  - Hyperalbuminaemia [Unknown]
  - Hypoproteinaemia [Unknown]
